FAERS Safety Report 7413969-8 (Version None)
Quarter: 2011Q2

REPORT INFORMATION
  Report Type: 
  Country: None (occurrence: None)
  Receive Date: 20110414
  Receipt Date: 20110329
  Transmission Date: 20111010
  Serious: No
  Sender: FDA-Public Use
  Company Number: US-BIOGENIDEC-2011BI011624

PATIENT
  Age: 42 Year
  Sex: Male

DRUGS (2)
  1. DEPAKOTE [Concomitant]
     Indication: HEADACHE
  2. TYSABRI [Suspect]
     Indication: MULTIPLE SCLEROSIS
     Route: 042
     Dates: start: 20100726

REACTIONS (5)
  - ENCEPHALOPATHY [None]
  - CONFUSIONAL STATE [None]
  - MULTIPLE SCLEROSIS [None]
  - INSOMNIA [None]
  - HALLUCINATION [None]
